FAERS Safety Report 7314172-2 (Version None)
Quarter: 2011Q1

REPORT INFORMATION
  Report Type: 
  Country: None (occurrence: None)
  Receive Date: 20110217
  Receipt Date: 20110217
  Transmission Date: 20110831
  Serious: Yes (Other)
  Sender: FDA-Public Use
  Company Number: None

PATIENT
  Age: 41 Year
  Sex: Male

DRUGS (1)
  1. ZOSYN [Suspect]
     Indication: BACTERAEMIA
     Dosage: 3.375 GM Q12HR IV
     Route: 042
     Dates: start: 20101206, end: 20101210

REACTIONS (2)
  - RASH [None]
  - OSTEOMYELITIS CHRONIC [None]
